FAERS Safety Report 6453785-7 (Version None)
Quarter: 2009Q4

REPORT INFORMATION
  Report Type: 
  Country: None (occurrence: None)
  Receive Date: 20091123
  Receipt Date: 20091123
  Transmission Date: 20100525
  Serious: Yes (Life-Threatening)
  Sender: FDA-Public Use
  Company Number: None

PATIENT
  Age: 59 Year
  Sex: Male
  Weight: 94 kg

DRUGS (1)
  1. VICKS MEDI-MIST AEROSOL SPRAY [Suspect]
     Indication: NASAL CONGESTION
     Dosage: 1 SPRAY OR 2 6-8 HRS NASAL
     Route: 045
     Dates: start: 20091001, end: 20091120

REACTIONS (1)
  - PRODUCT QUALITY ISSUE [None]
